FAERS Safety Report 4395363-X (Version None)
Quarter: 2004Q3

REPORT INFORMATION
  Report Type: 
  Country: None (occurrence: None)
  Receive Date: 20040712
  Receipt Date: 20040712
  Transmission Date: 20050211
  Serious: Yes (Other)
  Sender: FDA-Public Use
  Company Number: None

PATIENT
  Age: 29 Year
  Sex: Male

DRUGS (2)
  1. PROZAC [Suspect]
     Indication: GENERALISED ANXIETY DISORDER
     Dosage: 40 MG PO QD
     Route: 048
     Dates: start: 20040628, end: 20040706
  2. PROZAC [Suspect]
     Indication: SOCIAL PHOBIA
     Dosage: 40 MG PO QD
     Route: 048
     Dates: start: 20040628, end: 20040706

REACTIONS (3)
  - ANXIETY [None]
  - DRUG INEFFECTIVE [None]
  - URINARY RETENTION [None]
